FAERS Safety Report 5259333-1 (Version None)
Quarter: 2007Q1

REPORT INFORMATION
  Report Type: 
  Country: None (occurrence: None)
  Receive Date: 20070305
  Receipt Date: 20070213
  Transmission Date: 20070707
  Serious: Yes (Disabling)
  Sender: FDA-Public Use
  Company Number: ENT 2007-0012

PATIENT
  Age: 72 Year
  Sex: Male

DRUGS (9)
  1. COMTESS (ENTACAPONE) [Suspect]
     Indication: PARKINSON'S DISEASE
     Dosage: 5 TABLETS ORAL
     Route: 048
     Dates: start: 20070129, end: 20070205
  2. ROPINIROLE HCL [Concomitant]
  3. AMANTADINE HCL [Concomitant]
  4. DUTASTERIDE [Concomitant]
  5. TAMSULOSIN HCL [Concomitant]
  6. LANSOPRAZOLE [Concomitant]
  7. CO-BENELDOPA [Concomitant]
  8. MOVICOL [Concomitant]
  9. REGULAN [Concomitant]

REACTIONS (5)
  - ASTHENIA [None]
  - DRUG INEFFECTIVE [None]
  - HYPOKINESIA [None]
  - MOBILITY DECREASED [None]
  - ON AND OFF PHENOMENON [None]
